FAERS Safety Report 6753341-7 (Version None)
Quarter: 2010Q2

REPORT INFORMATION
  Report Type: 
  Country: None (occurrence: None)
  Receive Date: 20100603
  Receipt Date: 20100521
  Transmission Date: 20101027
  Serious: Yes (Death)
  Sender: FDA-Public Use
  Company Number: ES-ELI_LILLY_AND_COMPANY-ES201005006714

PATIENT
  Sex: Female
  Weight: 93 kg

DRUGS (10)
  1. FORTEO [Suspect]
     Indication: OSTEOPOROSIS
     Dosage: 20 UG, DAILY (1/D)
     Route: 058
     Dates: start: 20090506
  2. FORTEO [Suspect]
     Dosage: 20 UG, DAILY (1/D)
     Route: 058
     Dates: end: 20100401
  3. FLECAINIDE ACETATE [Concomitant]
     Indication: ARRHYTHMIA
     Dosage: UNK, DAILY (1/D)
     Route: 048
     Dates: end: 20100505
  4. MINITRANS [Concomitant]
     Indication: ANGINA PECTORIS
     Dosage: UNK, UNKNOWN
     Route: 061
     Dates: end: 20100505
  5. METFORMIN HCL [Concomitant]
     Indication: DIABETES MELLITUS
     Dosage: UNK, 2/D
     Route: 048
     Dates: end: 20100505
  6. UNIKET [Concomitant]
     Indication: ANGINA PECTORIS
     Dosage: UNK, DAILY (1/D)
     Route: 048
  7. IBERCAL [Concomitant]
     Dosage: UNK, DAILY (1/D)
     Route: 048
     Dates: end: 20100505
  8. CALCIO [Concomitant]
     Indication: OSTEOPOROSIS
     Dosage: UNK, DAILY (1/D)
     Route: 048
  9. CIPRALEX [Concomitant]
     Indication: DEPRESSION
     Dosage: UNK, DAILY (1/D)
     Route: 048
     Dates: end: 20100505
  10. DEPRELIO [Concomitant]
     Indication: DEPRESSION
     Dosage: UNK, UNKNOWN
     Route: 065
     Dates: end: 20100505

REACTIONS (1)
  - MYOCARDIAL INFARCTION [None]
